FAERS Safety Report 6348962-X (Version None)
Quarter: 2009Q3

REPORT INFORMATION
  Report Type: 
  Country: None (occurrence: None)
  Receive Date: 20090911
  Receipt Date: 20090831
  Transmission Date: 20100115
  Serious: Yes (Hospitalization)
  Sender: FDA-Public Use
  Company Number: IT-NOVOPROD-291213

PATIENT
  Sex: Female

DRUGS (11)
  1. NOVONORM [Suspect]
     Indication: DIABETES MELLITUS
     Route: 048
     Dates: start: 20080101, end: 20090821
  2. LASIX [Concomitant]
     Dosage: 25 MG, UNK
     Route: 048
  3. HALCION [Concomitant]
     Dosage: 25 MG, UNK
     Route: 048
  4. MEPRAL                             /00661201/ [Concomitant]
     Dosage: 20 MG, UNK
     Route: 048
  5. FERRO GRAD C [Concomitant]
     Dosage: 40 MG, UNK
     Route: 048
  6. BENEXOL                            /00176001/ [Concomitant]
     Route: 048
  7. ZESTRIL [Concomitant]
     Dosage: 10 MG, UNK
     Route: 048
  8. FOLINA                             /00024201/ [Concomitant]
     Dosage: 5 MG, UNK
     Route: 048
  9. SINEMET [Concomitant]
     Dosage: 375 MG, UNK
     Route: 048
  10. ZOLOFT [Concomitant]
     Dosage: UNK, UNK
     Route: 048
  11. LORAZEPAM [Concomitant]
     Dosage: 1 MG, QD
     Route: 048

REACTIONS (3)
  - ABDOMINAL PAIN [None]
  - HYPERPYREXIA [None]
  - HYPOGLYCAEMIA [None]
